FAERS Safety Report 20810916 (Version 3)
Quarter: 2022Q2

REPORT INFORMATION
  Report Type: Report from Study
  Country: US (occurrence: US)
  Receive Date: 20220510
  Receipt Date: 20220614
  Transmission Date: 20220721
  Serious: No
  Sender: FDA-Public Use
  Company Number: US-NOVARTISTESTPH-NVSC2022US108012

PATIENT
  Age: 83 Year
  Sex: Female

DRUGS (2)
  1. PIQRAY [Suspect]
     Active Substance: ALPELISIB
     Indication: Breast cancer
     Dosage: 300 MG, QD
     Route: 048
     Dates: start: 20220504
  2. PIQRAY [Suspect]
     Active Substance: ALPELISIB
     Dosage: 300 MG, Q2H
     Route: 048
     Dates: start: 20220504, end: 20220517

REACTIONS (11)
  - Heart rate irregular [Recovered/Resolved]
  - Lip blister [Recovered/Resolved]
  - Lip swelling [Recovered/Resolved]
  - Tongue discomfort [Recovered/Resolved]
  - Skin reaction [Recovered/Resolved]
  - Tongue pruritus [Recovering/Resolving]
  - Vulvovaginal dryness [Recovered/Resolved]
  - Rash [Recovered/Resolved]
  - Pyrexia [Recovered/Resolved]
  - Discharge [Recovered/Resolved]
  - Hyperglycaemia [Recovered/Resolved]

NARRATIVE: CASE EVENT DATE: 20220509
